FAERS Safety Report 20423516 (Version 1)
Quarter: 2022Q1

REPORT INFORMATION
  Report Type: Spontaneous
  Country: CN (occurrence: CN)
  Receive Date: 20220203
  Receipt Date: 20220203
  Transmission Date: 20220424
  Serious: Yes (Hospitalization, Other)
  Sender: FDA-Public Use
  Company Number: CN-Merck Healthcare KGaA-9292482

PATIENT
  Age: 59 Year
  Sex: Male
  Weight: 56 kg

DRUGS (9)
  1. ERBITUX [Suspect]
     Active Substance: CETUXIMAB
     Indication: Colon cancer metastatic
     Dosage: 800 MG, DAILY
     Route: 041
     Dates: start: 20211105, end: 20211105
  2. ERBITUX [Suspect]
     Active Substance: CETUXIMAB
     Dosage: 800 MG, DAILY
     Route: 041
     Dates: start: 20211124
  3. OXALIPLATIN [Suspect]
     Active Substance: OXALIPLATIN
     Indication: Colon cancer metastatic
     Dosage: 1300 MG, DAILY
     Route: 041
     Dates: start: 20211105, end: 20211105
  4. LEUCOVORIN CALCIUM [Suspect]
     Active Substance: LEUCOVORIN CALCIUM
     Indication: Colon cancer metastatic
     Dosage: 600 MG, DAILY
     Route: 041
     Dates: start: 20211105, end: 20211105
  5. LEUCOVORIN CALCIUM [Suspect]
     Active Substance: LEUCOVORIN CALCIUM
     Dosage: 600 MG, DAILY
     Route: 041
     Dates: start: 20211124, end: 20211124
  6. FLUOROURACIL [Suspect]
     Active Substance: FLUOROURACIL
     Indication: Colon cancer metastatic
     Dosage: 600 MG, DAILY
     Route: 041
     Dates: start: 20211105, end: 20211105
  7. FLUOROURACIL [Suspect]
     Active Substance: FLUOROURACIL
     Dosage: 3800 MG, DAILY
     Route: 042
     Dates: start: 20211105, end: 20211105
  8. FLUOROURACIL [Suspect]
     Active Substance: FLUOROURACIL
     Dosage: 600 MG, DAILY
     Route: 041
     Dates: start: 20211124, end: 20211124
  9. FLUOROURACIL [Suspect]
     Active Substance: FLUOROURACIL
     Dosage: 3800 MG, DAILY
     Route: 042
     Dates: start: 20211124, end: 20211124

REACTIONS (1)
  - Myelosuppression [Recovering/Resolving]

NARRATIVE: CASE EVENT DATE: 20211123
